FAERS Safety Report 20481607 (Version 1)
Quarter: 2022Q1

REPORT INFORMATION
  Report Type: Spontaneous
  Country: US (occurrence: None)
  Receive Date: 20220216
  Receipt Date: 20220216
  Transmission Date: 20220424
  Serious: Yes (Other)
  Sender: FDA-Public Use
  Company Number: None

PATIENT
  Age: 78 Year
  Sex: Female
  Weight: 83.91 kg

DRUGS (4)
  1. ERIVEDGE [Suspect]
     Active Substance: VISMODEGIB
     Indication: Skin cancer
     Dosage: OTHER QUANTITY : 1 CAPSULE;?FREQUENCY : DAILY;?
     Route: 048
     Dates: start: 20220103
  2. GABAPENTIN [Concomitant]
     Active Substance: GABAPENTIN
  3. SIMVASTATIN [Concomitant]
     Active Substance: SIMVASTATIN
  4. lanzoprazole 30mg [Concomitant]

REACTIONS (2)
  - COVID-19 [None]
  - Acne [None]

NARRATIVE: CASE EVENT DATE: 20220216
